FAERS Safety Report 12203455 (Version 1)
Quarter: 2016Q1

REPORT INFORMATION
  Report Type: Spontaneous
  Country: US (occurrence: None)
  Receive Date: 20160322
  Receipt Date: 20160322
  Transmission Date: 20160526
  Serious: Yes (Other)
  Sender: FDA-Public Use
  Company Number: None

PATIENT
  Age: 48 Year
  Sex: Female
  Weight: 74.84 kg

DRUGS (2)
  1. CELEXA [Suspect]
     Active Substance: CITALOPRAM HYDROBROMIDE
     Indication: DEPRESSION
  2. CELEXA [Suspect]
     Active Substance: CITALOPRAM HYDROBROMIDE
     Indication: ANXIETY

REACTIONS (10)
  - Vomiting [None]
  - Tremor [None]
  - Malaise [None]
  - Wrong drug administered [None]
  - Quality of life decreased [None]
  - Drug dispensing error [None]
  - Drug withdrawal syndrome [None]
  - Impaired driving ability [None]
  - Feeling cold [None]
  - Activities of daily living impaired [None]

NARRATIVE: CASE EVENT DATE: 20141119
